FAERS Safety Report 8997593 (Version 1)
Quarter: 2013Q1

REPORT INFORMATION
  Report Type: Spontaneous
  Country: DE (occurrence: DE)
  Receive Date: 20130104
  Receipt Date: 20130104
  Transmission Date: 20140127
  Serious: Yes (Hospitalization, Other)
  Sender: FDA-Public Use
  Company Number: DE-ABBOTT-12P-062-1012269-00

PATIENT
  Age: 73 Year
  Sex: Female
  Weight: 68 kg

DRUGS (5)
  1. INFLUVAC [Suspect]
     Indication: IMMUNISATION
     Dates: start: 20121023, end: 20121023
  2. METOBETA [Concomitant]
  3. GODAMED [Concomitant]
     Dosage: 1
  4. PROVASTATIN HEXAL [Concomitant]
     Dosage: 1
  5. AMLODIPIN DEXCEL [Concomitant]
     Dosage: 1

REACTIONS (7)
  - Suture insertion [Not Recovered/Not Resolved]
  - Gait disturbance [Not Recovered/Not Resolved]
  - Pain [Not Recovered/Not Resolved]
  - Influenza like illness [Not Recovered/Not Resolved]
  - Abdominal pain upper [Not Recovered/Not Resolved]
  - Lymphadenopathy [Recovered/Resolved]
  - Suicidal ideation [Unknown]
